FAERS Safety Report 5019312-6 (Version None)
Quarter: 2006Q2

REPORT INFORMATION
  Report Type: 
  Country: None (occurrence: None)
  Receive Date: 20060531
  Receipt Date: 20060512
  Transmission Date: 20061013
  Serious: Yes (Hospitalization)
  Sender: FDA-Public Use
  Company Number: 225591

PATIENT
  Age: 57 Year
  Sex: Male
  Weight: 77.2 kg

DRUGS (11)
  1. AVASTIN [Suspect]
     Indication: COLON CANCER
     Dosage: 575 MG Q3W INTRAVENOUS
     Route: 042
     Dates: start: 20060207
  2. CAPECITABINE (CAPECITABINE) [Suspect]
     Indication: COLON CANCER
     Dosage: 2500 MG BID ORAL
     Route: 048
     Dates: start: 20060207
  3. SODIUM FUSIDATE [Concomitant]
  4. VANCOMYCIN HYDROCHLORIDE [Concomitant]
  5. OMEPRAZOLE [Concomitant]
  6. FLUCLOXACILLINE (FLOXACILLIN) [Concomitant]
  7. ACETAMINOPHEN [Concomitant]
  8. PHYTONADIONE [Concomitant]
  9. IMIPENEM [Concomitant]
  10. FLUCONAZOLE [Concomitant]
  11. ANTICOAGULANT THERAPY (ANTICOAGULANT NOS) [Concomitant]

REACTIONS (11)
  - CELLULITIS [None]
  - DEEP VEIN THROMBOSIS [None]
  - DRUG INEFFECTIVE [None]
  - GASTRIC HAEMORRHAGE [None]
  - HAEMATEMESIS [None]
  - HAEMOGLOBIN DECREASED [None]
  - MELAENA [None]
  - OEDEMA PERIPHERAL [None]
  - OESOPHAGEAL ULCER [None]
  - PAIN IN EXTREMITY [None]
  - VENOUS THROMBOSIS LIMB [None]
